FAERS Safety Report 7531939-6 (Version None)
Quarter: 2011Q2

REPORT INFORMATION
  Report Type: 
  Country: None (occurrence: None)
  Receive Date: 20110608
  Receipt Date: 20110601
  Transmission Date: 20111010
  Serious: Yes (Death, Hospitalization, Other)
  Sender: FDA-Public Use
  Company Number: US-BAYER-2011-047596

PATIENT
  Sex: Male

DRUGS (7)
  1. BLINDED SORAFENIB (RAF KINASE INHIBITOR) [Suspect]
     Dosage: 400 MG, QD
     Route: 048
     Dates: start: 20110211, end: 20110220
  2. PLERIXAFOR [AMD3100] [Suspect]
     Dosage: 17376 ?G, QOD
     Route: 058
     Dates: start: 20110211, end: 20110223
  3. BLINDED SORAFENIB (RAF KINASE INHIBITOR) [Suspect]
     Dosage: 400 MG, BID
     Route: 048
     Dates: start: 20101217, end: 20101225
  4. FILGRASTIM [Suspect]
     Dosage: 780 ?G, QOD
     Route: 058
     Dates: start: 20110211, end: 20110309
  5. FILGRASTIM [Suspect]
     Dosage: 960 ?G, QOD
     Route: 058
     Dates: start: 20101217, end: 20101225
  6. BLINDED SORAFENIB (RAF KINASE INHIBITOR) [Suspect]
     Dosage: 400 MG, QOD
     Route: 048
     Dates: start: 20110221, end: 20110223
  7. PLERIXAFOR [AMD3100] [Suspect]
     Dosage: 19200 ?G, QOD
     Route: 058
     Dates: start: 20101217, end: 20101225

REACTIONS (7)
  - HYPOTENSION [None]
  - RENAL FAILURE [None]
  - FEBRILE NEUTROPENIA [None]
  - LEUKAEMIA [None]
  - VOMITING [None]
  - NAUSEA [None]
  - PALMAR-PLANTAR ERYTHRODYSAESTHESIA SYNDROME [None]
